FAERS Safety Report 8662037 (Version 2)
Quarter: 2012Q4

REPORT INFORMATION
  Report Type: Report from Study
  Country: US (occurrence: US)
  Receive Date: 20120712
  Receipt Date: 20121002
  Transmission Date: 20130627
  Serious: Yes (Hospitalization)
  Sender: FDA-Public Use
  Company Number: US-GLAXOSMITHKLINE-B0814113A

PATIENT
  Age: 46 Year
  Sex: Female
  Weight: 111.2 kg

DRUGS (16)
  1. BUPROPION HYDROCHLORIDE [Suspect]
     Indication: EX-TOBACCO USER
     Dosage: 150MG Twice per day
     Route: 048
     Dates: start: 20120109, end: 20120131
  2. ROBAXIN [Concomitant]
     Dates: start: 20100824
  3. KLONOPIN [Concomitant]
     Dates: start: 2008
  4. FLOVENT [Concomitant]
     Dates: start: 20111208
  5. ALBUTEROL [Concomitant]
     Dates: start: 1979
  6. CIMETIDINE [Concomitant]
     Dates: start: 2006
  7. TYLENOL #3 W CODEINE [Concomitant]
  8. B COMPLEX [Concomitant]
     Dates: start: 2008
  9. FISH OIL [Concomitant]
     Dates: start: 2008
  10. GARLIC [Concomitant]
     Dates: start: 201111
  11. CO-Q10 [Concomitant]
     Dates: start: 201111
  12. CALCIUM WITH VITAMIN D [Concomitant]
     Dates: start: 2008
  13. PROBIOTICS [Concomitant]
     Dates: start: 201109
  14. GINSENG [Concomitant]
     Dates: start: 201111
  15. PERI-COLACE [Concomitant]
     Dates: start: 20120207
  16. ANUSOL-HC [Concomitant]
     Dates: start: 20120207

REACTIONS (1)
  - Bipolar I disorder [Recovered/Resolved]
